FAERS Safety Report 7821281-8 (Version None)
Quarter: 2011Q4

REPORT INFORMATION
  Report Type: 
  Country: None (occurrence: None)
  Receive Date: 20111018
  Receipt Date: 20101222
  Transmission Date: 20120403
  Serious: No
  Sender: FDA-Public Use
  Company Number: US-ASTRAZENECA-2010SE60441

PATIENT
  Age: 50 Year
  Sex: Female

DRUGS (1)
  1. SYMBICORT [Suspect]
     Indication: ASTHMA
     Dosage: TOTAL DAILY DOSAGE: 80 /4.5, FREQUENCY: TWO TIMES A DAY.
     Route: 055
     Dates: start: 20101215, end: 20101219

REACTIONS (2)
  - BRONCHOSPASM [None]
  - DYSPNOEA [None]
